FAERS Safety Report 17072381 (Version 1)
Quarter: 2019Q4

REPORT INFORMATION
  Report Type: Spontaneous
  Country: CO (occurrence: CO)
  Receive Date: 20191125
  Receipt Date: 20191125
  Transmission Date: 20200122
  Serious: Yes (Other)
  Sender: FDA-Public Use
  Company Number: CO-BAYER-2019-210461

PATIENT
  Age: 32 Year
  Sex: Female

DRUGS (1)
  1. GYNOCANESTEN [Suspect]
     Active Substance: CLOTRIMAZOLE
     Dosage: UNK
     Dates: start: 20191112, end: 20191113

REACTIONS (2)
  - Urinary retention [None]
  - Cystitis [None]

NARRATIVE: CASE EVENT DATE: 20191112
